FAERS Safety Report 20831338 (Version 4)
Quarter: 2022Q3

REPORT INFORMATION
  Report Type: Report from Study
  Country: US (occurrence: US)
  Receive Date: 20220516
  Receipt Date: 20220805
  Transmission Date: 20221027
  Serious: No
  Sender: FDA-Public Use
  Company Number: US-NOVARTISTESTPH-NVSC2022US111048

PATIENT
  Sex: Male

DRUGS (1)
  1. OMNITROPE [Suspect]
     Active Substance: SOMATROPIN
     Indication: Product used for unknown indication
     Dosage: UNK, QD (STRENGTH 5.8MG)
     Route: 058
     Dates: start: 20220501

REACTIONS (3)
  - Lethargy [Unknown]
  - Fatigue [Unknown]
  - Pain in extremity [Unknown]
